FAERS Safety Report 24773374 (Version 2)
Quarter: 2025Q1

REPORT INFORMATION
  Report Type: Spontaneous
  Country: US (occurrence: US)
  Receive Date: 20241225
  Receipt Date: 20250115
  Transmission Date: 20250409
  Serious: No
  Sender: ELI LILLY AND COMPANY
  Company Number: US-ELI_LILLY_AND_COMPANY-US202412016080

PATIENT
  Age: 88 Year
  Sex: Female

DRUGS (4)
  1. FORTEO [Suspect]
     Active Substance: TERIPARATIDE
     Indication: Osteoporosis
     Route: 058
     Dates: start: 202306
  2. FORTEO [Suspect]
     Active Substance: TERIPARATIDE
     Indication: Osteoporosis
     Route: 058
     Dates: start: 202306
  3. FORTEO [Suspect]
     Active Substance: TERIPARATIDE
     Route: 065
  4. FORTEO [Suspect]
     Active Substance: TERIPARATIDE
     Route: 065

REACTIONS (4)
  - Injury associated with device [Recovering/Resolving]
  - Drug dose omission by device [Unknown]
  - Injury associated with device [Unknown]
  - Wrong technique in device usage process [Unknown]
